FAERS Safety Report 9271598 (Version 1)
Quarter: 2013Q2

REPORT INFORMATION
  Report Type: Spontaneous
  Country: US (occurrence: US)
  Receive Date: 20130506
  Receipt Date: 20130506
  Transmission Date: 20140414
  Serious: Yes (Hospitalization)
  Sender: FDA-Public Use
  Company Number: US-SANOFI-AVENTIS-2013SA044463

PATIENT
  Age: 72 Year
  Sex: Male

DRUGS (5)
  1. LASIX [Suspect]
     Route: 048
  2. XALKORI [Suspect]
     Indication: LUNG ADENOCARCINOMA STAGE IV
  3. LISINOPRIL [Suspect]
  4. SIMVASTATIN [Suspect]
  5. DILTIAZEM [Suspect]
     Dosage: 1X/DAY (240 ONE DAILY)

REACTIONS (9)
  - Lung adenocarcinoma stage IV [Unknown]
  - Vasogenic cerebral oedema [Unknown]
  - Disease progression [Unknown]
  - Renal failure acute [Recovered/Resolved]
  - Nausea [Recovered/Resolved]
  - Vomiting [Recovered/Resolved]
  - Dehydration [Recovered/Resolved]
  - Diarrhoea [Unknown]
  - Hypotension [Unknown]
